FAERS Safety Report 9413180 (Version 1)
Quarter: 2013Q3

REPORT INFORMATION
  Report Type: Spontaneous
  Country: US (occurrence: None)
  Receive Date: 20130717
  Receipt Date: 20130717
  Transmission Date: 20140515
  Serious: Yes (Death)
  Sender: FDA-Public Use
  Company Number: UTC-035118

PATIENT
  Age: 59 Year
  Sex: Female
  Weight: 72.7 kg

DRUGS (1)
  1. TYVASO (6 MICROGRAM, AEROSOL FOR INHALATION) (TREPROSTINIL SODIUM) [Suspect]
     Indication: PULMONARY ARTERIAL HYPERTENSION
     Dosage: (54, MCG, 4 IN 1 D)
     Route: 055
     Dates: start: 20120921

REACTIONS (1)
  - Death [None]
